FAERS Safety Report 7041879-7 (Version None)
Quarter: 2010Q4

REPORT INFORMATION
  Report Type: 
  Country: None (occurrence: None)
  Receive Date: 20101008
  Receipt Date: 20100924
  Transmission Date: 20110411
  Serious: Yes (Death)
  Sender: FDA-Public Use
  Company Number: 2010TR0034

PATIENT
  Age: 8 Year
  Sex: Female

DRUGS (1)
  1. ORFADIN [Suspect]
     Indication: TYROSINAEMIA
     Dosage: 2 MG/KG (40 MG, 1 IN 1 D)
     Dates: start: 20100210, end: 20100701

REACTIONS (1)
  - DEATH [None]
